FAERS Safety Report 10086204 (Version 3)
Quarter: 2014Q3

REPORT INFORMATION
  Report Type: Report from Study
  Country: CA (occurrence: CA)
  Receive Date: 20140418
  Receipt Date: 20140822
  Transmission Date: 20150326
  Serious: Yes (Other)
  Sender: FDA-Public Use
  Company Number: CA-JNJFOC-20140408414

PATIENT
  Age: 61 Year
  Sex: Male
  Weight: 85 kg

DRUGS (8)
  1. IRON INFUSIONS [Concomitant]
     Route: 065
     Dates: start: 20140406
  2. CALCIUM [Concomitant]
     Active Substance: CALCIUM
     Route: 048
  3. REMICADE [Suspect]
     Active Substance: INFLIXIMAB
     Indication: COLITIS ULCERATIVE
     Route: 042
     Dates: start: 20130921, end: 20140412
  4. VITAMIN B12 [Concomitant]
     Active Substance: CYANOCOBALAMIN
     Route: 048
  5. STEROIDS NOS [Concomitant]
     Active Substance: UNSPECIFIED INGREDIENT
     Route: 065
  6. SALOFALK [Concomitant]
     Active Substance: MESALAMINE
     Dosage: 8 TABLETS DAILY FOR 2 YEARS TO PRESENT
     Route: 048
  7. TYLENOL [Concomitant]
     Active Substance: ACETAMINOPHEN
     Indication: ARTHRITIS
     Route: 048
  8. VITAMIN D [Concomitant]
     Active Substance: CHOLECALCIFEROL
     Route: 048

REACTIONS (9)
  - Urticaria [Unknown]
  - Heart rate increased [Recovering/Resolving]
  - Flushing [Unknown]
  - Blood pressure increased [Recovering/Resolving]
  - Infusion related reaction [Unknown]
  - Pruritus [Unknown]
  - Swelling [Unknown]
  - Mass [Unknown]
  - Vision blurred [Unknown]

NARRATIVE: CASE EVENT DATE: 201404
